FAERS Safety Report 19745911 (Version 1)
Quarter: 2021Q3

REPORT INFORMATION
  Report Type: Spontaneous
  Country: US (occurrence: US)
  Receive Date: 20210824
  Receipt Date: 20210824
  Transmission Date: 20211014
  Serious: No
  Sender: FDA-Public Use
  Company Number: None

PATIENT
  Age: 62 Year
  Sex: Female
  Weight: 81 kg

DRUGS (20)
  1. RYBELSUS [Suspect]
     Active Substance: SEMAGLUTIDE
     Indication: TYPE 2 DIABETES MELLITUS
     Dosage: ?          QUANTITY:1 TABLET(S);?
     Route: 048
     Dates: start: 20210720
  2. LISINOPRIL. [Concomitant]
     Active Substance: LISINOPRIL
  3. HYDROCODONE [Concomitant]
     Active Substance: HYDROCODONE
  4. FENOFIBRATE. [Concomitant]
     Active Substance: FENOFIBRATE
  5. TIZANIDINE. [Concomitant]
     Active Substance: TIZANIDINE
  6. ACETAMINOPHEN. [Concomitant]
     Active Substance: ACETAMINOPHEN
  7. METFORMIN [Concomitant]
     Active Substance: METFORMIN HYDROCHLORIDE
  8. TRAZODONE [Concomitant]
     Active Substance: TRAZODONE HYDROCHLORIDE
  9. OMEPRAZOLE. [Concomitant]
     Active Substance: OMEPRAZOLE
  10. LORATADINE. [Concomitant]
     Active Substance: LORATADINE
  11. VNS [Concomitant]
  12. LEVEOTHYROXINE [Concomitant]
  13. MITIGARE [Concomitant]
     Active Substance: COLCHICINE
  14. LORAZEPAM. [Concomitant]
     Active Substance: LORAZEPAM
  15. HYDROXYCHLORIQUINE [Concomitant]
     Active Substance: HYDROXYCHLOROQUINE
  16. FLUOXETINE [Concomitant]
     Active Substance: FLUOXETINE HYDROCHLORIDE
  17. FLONASE [Concomitant]
     Active Substance: FLUTICASONE PROPIONATE
  18. DIPHENHYDRAMINE. [Concomitant]
     Active Substance: DIPHENHYDRAMINE
  19. LEFLUNIMIDE [Concomitant]
  20. RESTASIS [Concomitant]
     Active Substance: CYCLOSPORINE

REACTIONS (2)
  - Depression [None]
  - Therapy change [None]

NARRATIVE: CASE EVENT DATE: 20210824
